FAERS Safety Report 21226850 (Version 1)
Quarter: 2022Q3

REPORT INFORMATION
  Report Type: Spontaneous
  Country: US (occurrence: US)
  Receive Date: 20220818
  Receipt Date: 20220818
  Transmission Date: 20221027
  Serious: Yes (Other)
  Sender: FDA-Public Use
  Company Number: US-CELLTRION INC.-2022US013097

PATIENT

DRUGS (1)
  1. TRUXIMA [Suspect]
     Active Substance: RITUXIMAB-ABBS
     Indication: Mantle cell lymphoma
     Dosage: 700 MG, EVERY 28 DAYS/THERAPY PLANNED DATE OF 05SEP2022 FOR TRUXIMA (700 MG EVERY 28 DAYS)
     Dates: start: 20220808

REACTIONS (2)
  - Mantle cell lymphoma [Unknown]
  - Off label use [Unknown]
